FAERS Safety Report 20145407 (Version 1)
Quarter: 2021Q4

REPORT INFORMATION
  Report Type: Spontaneous
  Country: EG (occurrence: None)
  Receive Date: 20211203
  Receipt Date: 20211203
  Transmission Date: 20220303
  Serious: Yes (Other)
  Sender: FDA-Public Use
  Company Number: 2021A846765

PATIENT
  Sex: Female

DRUGS (3)
  1. FASLODEX [Suspect]
     Active Substance: FULVESTRANT
     Indication: Breast cancer metastatic
     Dosage: MONTHLY (1 MONTH AS MONO THERAPY)
     Route: 030
  2. FASLODEX [Suspect]
     Active Substance: FULVESTRANT
     Indication: Breast cancer metastatic
     Dosage: (FOLLOWED BY 3 MONTHS IN COMBINATION WITH RIBOCICLIB)
     Route: 030
  3. RIBOCICLIB [Suspect]
     Active Substance: RIBOCICLIB
     Route: 065

REACTIONS (5)
  - Malignant neoplasm progression [Unknown]
  - Metastases to bone [Unknown]
  - Pleural effusion [Unknown]
  - Abdominal lymphadenopathy [Unknown]
  - Metastases to peritoneum [Unknown]
